FAERS Safety Report 15850865 (Version 1)
Quarter: 2019Q1

REPORT INFORMATION
  Report Type: Report from Study
  Country: None (occurrence: FR)
  Receive Date: 20190121
  Receipt Date: 20190121
  Transmission Date: 20190417
  Serious: Yes (Hospitalization)
  Sender: FDA-Public Use
  Company Number: FR-ABBVIE-19S-056-2629697-00

PATIENT
  Age: 76 Year
  Sex: Male

DRUGS (1)
  1. DUODOPA [Suspect]
     Active Substance: CARBIDOPA\LEVODOPA
     Indication: PARKINSON^S DISEASE
     Dosage: MD 13.5 ML; CONTINUOUS FLOW RATE DURING THE DAY: 3.5 ML/H; ED: 2.2 ML.
     Route: 050
     Dates: start: 20140806

REACTIONS (2)
  - Influenza [Not Recovered/Not Resolved]
  - Device occlusion [Unknown]
